FAERS Safety Report 23136930 (Version 4)
Quarter: 2023Q4

REPORT INFORMATION
  Report Type: Report from Study
  Country: EE (occurrence: None)
  Receive Date: 20231102
  Receipt Date: 20231129
  Transmission Date: 20240110
  Serious: No
  Sender: FDA-Public Use
  Company Number: EE-ROCHE-3449342

PATIENT
  Age: 58 Year
  Sex: Female
  Weight: 54 kg

DRUGS (9)
  1. ATEZOLIZUMAB [Suspect]
     Active Substance: ATEZOLIZUMAB
     Indication: Hepatocellular carcinoma
     Dosage: ON 26/OCT/2023, START DATE OF MOST RECENT DOSE OF ATEZOLIZUMAB (1200 MG)  PRIOR TO AE/SAE.
     Route: 041
     Dates: start: 20230503
  2. LENVATINIB [Suspect]
     Active Substance: LENVATINIB
     Indication: Hepatocellular carcinoma
     Dosage: ON 25/OCT/2023,START DATE OF MOST RECENT DOSE OF LENVATINIB (12 MG) PRIOR TO AE/SAE.
     Route: 048
     Dates: start: 20230503
  3. CIPRALEX [Concomitant]
     Active Substance: ESCITALOPRAM OXALATE
     Route: 048
     Dates: start: 20230314
  4. SUMATRIPTAN [Concomitant]
     Active Substance: SUMATRIPTAN
  5. AMLODIPIINI [Concomitant]
     Route: 048
  6. METOPROLOL [Concomitant]
     Active Substance: METOPROLOL
     Route: 048
  7. CODEINE [Concomitant]
     Active Substance: CODEINE
     Route: 048
     Dates: start: 20230726
  8. RINGERS SOLUTION [Concomitant]
     Active Substance: CALCIUM CHLORIDE\POTASSIUM CHLORIDE\SODIUM CHLORIDE
     Dates: start: 20231026, end: 20231026
  9. PREDNISOLONE [Concomitant]
     Active Substance: PREDNISOLONE
     Dates: start: 20231026, end: 20231026

REACTIONS (1)
  - Anaphylactic reaction [Recovered/Resolved]

NARRATIVE: CASE EVENT DATE: 20231026
